FAERS Safety Report 6554227-3 (Version None)
Quarter: 2010Q1

REPORT INFORMATION
  Report Type: 
  Country: None (occurrence: None)
  Receive Date: 20100122
  Receipt Date: 20100106
  Transmission Date: 20100710
  Serious: Yes (Hospitalization)
  Sender: FDA-Public Use
  Company Number: 2010AC000037

PATIENT
  Age: 74 Year
  Sex: Female

DRUGS (23)
  1. DIGOXIN [Suspect]
     Dosage: 0.125 MG;QD;PO
     Route: 048
     Dates: start: 20030401
  2. COLACE [Concomitant]
  3. TYLENOL-500 [Concomitant]
  4. PROTONIX [Concomitant]
  5. NITROSTAT [Concomitant]
  6. PREDNISONE [Concomitant]
  7. ASPIRIN [Concomitant]
  8. CARDIZEM [Concomitant]
  9. ZOCOR [Concomitant]
  10. LASIX [Concomitant]
  11. METHOTREXATE [Concomitant]
  12. LISINOPRIL [Concomitant]
  13. AMIODARONE HCL [Concomitant]
  14. CALCIUM [Concomitant]
  15. NITROGLYCERIN [Concomitant]
  16. ACETAMINOPHEN [Concomitant]
  17. FUROSEMIDE [Concomitant]
  18. COREG [Concomitant]
  19. FERROUS SULFATE TAB [Concomitant]
  20. SOLU-MEDROL [Concomitant]
  21. WARFARIN SODIUM [Concomitant]
  22. VIOXX [Concomitant]
  23. EPINEPHRINE [Concomitant]

REACTIONS (11)
  - ACUTE CORONARY SYNDROME [None]
  - ANAEMIA [None]
  - ANGINA UNSTABLE [None]
  - ATRIAL FIBRILLATION [None]
  - CARDIAC FAILURE CONGESTIVE [None]
  - COAGULOPATHY [None]
  - GASTRIC ULCER HAEMORRHAGE [None]
  - HYPOTENSION [None]
  - INTERNATIONAL NORMALISED RATIO INCREASED [None]
  - MYOCARDIAL INFARCTION [None]
  - PROTHROMBIN TIME PROLONGED [None]
